FAERS Safety Report 12476759 (Version 2)
Quarter: 2017Q2

REPORT INFORMATION
  Report Type: Spontaneous
  Country: US (occurrence: US)
  Receive Date: 20160617
  Receipt Date: 20170516
  Transmission Date: 20170830
  Serious: No
  Sender: FDA-Public Use
  Company Number: US-009507513-1605USA013038

PATIENT
  Sex: Female

DRUGS (1)
  1. NEXPLANON [Suspect]
     Active Substance: ETONOGESTREL
     Indication: PRODUCT USED FOR UNKNOWN INDICATION
     Dosage: 1 ROD EVERY 3 YEARS
     Route: 059
     Dates: start: 20150227

REACTIONS (3)
  - Anxiety [Unknown]
  - Device breakage [Not Recovered/Not Resolved]
  - Implant site reaction [Unknown]

NARRATIVE: CASE EVENT DATE: 201604
